FAERS Safety Report 6932885-9 (Version None)
Quarter: 2010Q3

REPORT INFORMATION
  Report Type: 
  Country: None (occurrence: None)
  Receive Date: 20100813
  Receipt Date: 20100507
  Transmission Date: 20110219
  Serious: No
  Sender: FDA-Public Use
  Company Number: 1000013704

PATIENT
  Age: 67 Year
  Sex: Male

DRUGS (9)
  1. SAVELLA [Suspect]
     Indication: PAIN
     Dosage: 12.5 MG (12.5 MG, 1 IN 1 D), ORAL
     Route: 048
     Dates: start: 20100506
  2. GLYBURIDE [Concomitant]
  3. METFORMIN HCL [Concomitant]
  4. HYDROCHLOROTHIAZIDE [Concomitant]
  5. LISINOPRIL [Concomitant]
  6. CRESTOR [Concomitant]
  7. NAPROXEN [Concomitant]
  8. POTASSIUM CHLORIDE [Concomitant]
  9. LASIX [Concomitant]

REACTIONS (1)
  - URINARY RETENTION [None]
